FAERS Safety Report 6594431-1 (Version None)
Quarter: 2010Q1

REPORT INFORMATION
  Report Type: 
  Country: None (occurrence: None)
  Receive Date: 20100222
  Receipt Date: 20100218
  Transmission Date: 20100710
  Serious: Yes (Other)
  Sender: FDA-Public Use
  Company Number: D0065341A

PATIENT
  Sex: Male
  Weight: 85 kg

DRUGS (6)
  1. REQUIP [Suspect]
     Indication: PARKINSON'S DISEASE
     Dosage: 8MG IN THE MORNING
     Route: 048
     Dates: start: 20091130
  2. MADOPAR [Concomitant]
     Route: 065
  3. FLUVASTATIN [Concomitant]
     Dosage: 40MG PER DAY
     Route: 065
  4. OLMETEC [Concomitant]
     Indication: ESSENTIAL HYPERTENSION
     Dosage: 20MG PER DAY
     Route: 065
     Dates: start: 20090101
  5. HYDROCHLOROTHIAZIDE [Concomitant]
     Indication: ESSENTIAL HYPERTENSION
     Dosage: 12.5MG PER DAY
     Route: 065
     Dates: start: 20090101
  6. TERBINAFIN [Concomitant]
     Indication: TINEA PEDIS
     Dosage: 125MG PER DAY
     Route: 065
     Dates: start: 20090101

REACTIONS (2)
  - LOSS OF CONSCIOUSNESS [None]
  - SOMNAMBULISM [None]
